FAERS Safety Report 6751167-1 (Version None)
Quarter: 2010Q2

REPORT INFORMATION
  Report Type: 
  Country: None (occurrence: None)
  Receive Date: 20100602
  Receipt Date: 20100521
  Transmission Date: 20101027
  Serious: Yes (Hospitalization)
  Sender: FDA-Public Use
  Company Number: US-SANOFI-AVENTIS-2010SA030080

PATIENT
  Age: 78 Year
  Sex: Female
  Weight: 76.7 kg

DRUGS (15)
  1. LASIX [Suspect]
     Indication: OSTEOARTHRITIS
     Route: 065
     Dates: start: 20070601
  2. INVESTIGATIONAL DRUG [Suspect]
     Route: 065
     Dates: start: 20070918, end: 20071226
  3. NEXIUM /UNK/ [Concomitant]
     Dates: start: 20070710
  4. ASPIRIN [Concomitant]
     Dates: start: 20070606
  5. ATENOLOL [Concomitant]
     Dates: start: 20070905
  6. SYNTHROID [Concomitant]
     Dates: start: 19980101
  7. VERAPAMIL [Concomitant]
     Dates: start: 20071201
  8. LISINOPRIL [Concomitant]
     Dates: start: 20020101
  9. SIMVASTATIN [Concomitant]
     Dates: start: 20070601
  10. FLUOXETINE [Concomitant]
     Dates: start: 20040101
  11. MAGNESIUM [Concomitant]
     Dates: start: 20070905
  12. COENZYME Q10 [Concomitant]
     Dates: start: 20070905
  13. METOPROLOL TARTRATE [Concomitant]
  14. VITAMIN B COMPLEX CAP [Concomitant]
     Dates: start: 20070907
  15. DETROL [Concomitant]
     Dates: start: 20060101

REACTIONS (1)
  - MALAISE [None]
